FAERS Safety Report 6985538-5 (Version None)
Quarter: 2010Q3

REPORT INFORMATION
  Report Type: 
  Country: None (occurrence: None)
  Receive Date: 20100915
  Receipt Date: 20100901
  Transmission Date: 20110219
  Serious: Yes (Death, Hospitalization)
  Sender: FDA-Public Use
  Company Number: PK-JNJFOC-HOAFF7332

PATIENT
  Age: 24 Month
  Sex: Male
  Weight: 10 kg

DRUGS (3)
  1. LOPERAMIDE [Suspect]
     Route: 048
  2. LOPERAMIDE [Suspect]
     Indication: DIARRHOEA
     Route: 048
  3. STREPTOMAGMA(R) [Concomitant]

REACTIONS (7)
  - ABDOMINAL DISTENSION [None]
  - CONSTIPATION [None]
  - DEATH [None]
  - DYSPNOEA [None]
  - ILEUS [None]
  - INTENTIONAL DRUG MISUSE [None]
  - SOMNOLENCE [None]
